FAERS Safety Report 5021986-0 (Version None)
Quarter: 2006Q2

REPORT INFORMATION
  Report Type: 
  Country: None (occurrence: None)
  Receive Date: 20060605
  Receipt Date: 20060519
  Transmission Date: 20061013
  Serious: Yes (Other)
  Sender: FDA-Public Use
  Company Number: US-2006-012281

PATIENT
  Age: 51 Year
  Sex: Female

DRUGS (11)
  1. BETASERON [Suspect]
     Indication: MULTIPLE SCLEROSIS
     Dosage: 6 MIU EVERY 2 D SUBCUTANEOUS
     Route: 058
     Dates: start: 20060510
  2. ARIMIDEX [Concomitant]
  3. LIPITOR [Concomitant]
  4. TRAZODONE HCL [Concomitant]
  5. NEURONTIN [Concomitant]
  6. BP MEDS [Concomitant]
  7. PAXIL [Concomitant]
  8. ASPIRIN [Concomitant]
  9. CALCIUM (CALCIUM) [Concomitant]
  10. STOOL SOFTENER (DOCUSATE SODIUM) [Concomitant]
  11. NETANX [Concomitant]

REACTIONS (4)
  - INJECTION SITE PAIN [None]
  - VAGINAL HAEMORRHAGE [None]
  - VASCULAR FRAGILITY [None]
  - VISUAL ACUITY REDUCED [None]
